FAERS Safety Report 8156734-9 (Version None)
Quarter: 2012Q1

REPORT INFORMATION
  Report Type: 
  Country: None (occurrence: None)
  Receive Date: 20120210
  Receipt Date: 20120127
  Transmission Date: 20120608
  Serious: Yes (Hospitalization)
  Sender: FDA-Public Use
  Company Number: 2012PROUSA00956

PATIENT
  Age: 67 Year
  Sex: Male
  Weight: 95.2 kg

DRUGS (11)
  1. BENADRYL [Concomitant]
  2. MORPHINE [Concomitant]
  3. SENOKOT /00142201/ (SENNA ALEXANDRINA) [Concomitant]
  4. COLACE (DOCUSATE SODIUM) [Concomitant]
  5. LIDOCAINE [Concomitant]
  6. DULCOLAX /00064401/ (BISACODYL) [Concomitant]
  7. INSULIN [Concomitant]
  8. PROVENGE [Suspect]
     Indication: PROSTATE CANCER METASTATIC
     Dosage: 250 ML, SINGLE, INTRAVENOUS
     Route: 042
     Dates: start: 20120112, end: 20120112
  9. AMOXICILLIN [Suspect]
     Dosage: 2 G, UNK
  10. VICODIN [Concomitant]
  11. TYLENOL /00020001/ (PARACETAMOL) [Concomitant]

REACTIONS (16)
  - SYSTEMIC INFLAMMATORY RESPONSE SYNDROME [None]
  - PURPURA [None]
  - CONSTIPATION [None]
  - CATHETER SITE INFECTION [None]
  - SEPSIS [None]
  - OEDEMA PERIPHERAL [None]
  - LEUKOCYTOSIS [None]
  - ATRIAL FIBRILLATION [None]
  - LACTIC ACIDOSIS [None]
  - BACTERIAL TEST POSITIVE [None]
  - BLOOD POTASSIUM DECREASED [None]
  - PETECHIAE [None]
  - PLATELET COUNT DECREASED [None]
  - RASH ERYTHEMATOUS [None]
  - RENAL FAILURE CHRONIC [None]
  - NIGHT SWEATS [None]
